FAERS Safety Report 6185010-9 (Version None)
Quarter: 2009Q2

REPORT INFORMATION
  Report Type: 
  Country: None (occurrence: None)
  Receive Date: 20090511
  Receipt Date: 20090326
  Transmission Date: 20091009
  Serious: No
  Sender: FDA-Public Use
  Company Number: A0775632A

PATIENT
  Age: 71 Year
  Sex: Male

DRUGS (9)
  1. COREG CR [Suspect]
     Indication: HYPERTENSION
     Dosage: 20MG PER DAY
     Route: 048
     Dates: start: 20090325
  2. CREON [Concomitant]
  3. SINGULAIR [Concomitant]
  4. OMEPRAZOLE [Concomitant]
  5. VOLTAREN [Concomitant]
  6. DOXAZOSIN MESYLATE [Concomitant]
  7. DONNATAL [Concomitant]
  8. IMODIUM [Concomitant]
  9. GAVISCON [Concomitant]

REACTIONS (5)
  - ABDOMINAL PAIN UPPER [None]
  - DIARRHOEA [None]
  - DYSPEPSIA [None]
  - FLUID RETENTION [None]
  - NAUSEA [None]
